FAERS Safety Report 10838448 (Version 1)
Quarter: 2015Q1

REPORT INFORMATION
  Report Type: Spontaneous
  Country: US (occurrence: US)
  Receive Date: 20150219
  Receipt Date: 20150219
  Transmission Date: 20150721
  Serious: No
  Sender: FDA-Public Use
  Company Number: US-ABBVIE-14P-163-1226975-00

PATIENT
  Sex: Male
  Weight: 79.45 kg

DRUGS (5)
  1. UNKNOWN LAXATIVES [Concomitant]
     Indication: CROHN^S DISEASE
  2. BETAINE HYDROCHLORIDE [Concomitant]
     Active Substance: BETAINE HYDROCHLORIDE
     Indication: CONSTIPATION
  3. VALIUM [Concomitant]
     Active Substance: DIAZEPAM
     Indication: PRODUCT USED FOR UNKNOWN INDICATION
  4. HUMIRA [Suspect]
     Active Substance: ADALIMUMAB
     Indication: CROHN^S DISEASE
     Route: 058
     Dates: start: 2011
  5. OXYCODONE [Concomitant]
     Active Substance: OXYCODONE
     Indication: PRODUCT USED FOR UNKNOWN INDICATION

REACTIONS (4)
  - Obsessive-compulsive disorder [Not Recovered/Not Resolved]
  - Injection site pain [Not Recovered/Not Resolved]
  - Headache [Not Recovered/Not Resolved]
  - Social phobia [Not Recovered/Not Resolved]

NARRATIVE: CASE EVENT DATE: 2011
